FAERS Safety Report 6677729-8 (Version None)
Quarter: 2010Q2

REPORT INFORMATION
  Report Type: 
  Country: None (occurrence: None)
  Receive Date: 20100412
  Receipt Date: 20100215
  Transmission Date: 20101027
  Serious: No
  Sender: FDA-Public Use
  Company Number: US-ALEXION-A200901110

PATIENT
  Sex: Male

DRUGS (10)
  1. SOLIRIS [Suspect]
     Indication: PAROXYSMAL NOCTURNAL HAEMOGLOBINURIA
     Dosage: 600 MG, QW X4
     Route: 042
     Dates: start: 20091014
  2. SOLIRIS [Suspect]
     Dosage: 900 MG, Q2W
     Route: 042
     Dates: start: 20091111
  3. COUMADIN [Concomitant]
     Dosage: UNK
     Route: 048
  4. FOLIC ACID [Concomitant]
     Dosage: 1 MG, TID
     Route: 048
  5. OMEPRAZOLE [Concomitant]
     Dosage: 40 MG, QD
     Route: 048
  6. PREDNISOLONE [Concomitant]
     Dosage: 40 MG, QD
     Route: 048
  7. SIMVASTATIN [Concomitant]
     Dosage: UNK
     Route: 048
  8. DULCOLAX                           /00064401/ [Concomitant]
     Indication: CONSTIPATION
     Dosage: UNK
     Route: 046
  9. TYLENOL (CAPLET) [Concomitant]
     Dosage: UNK
     Route: 048
  10. LOVAZA [Concomitant]
     Dosage: UNK
     Route: 048

REACTIONS (1)
  - HAEMORRHOIDAL HAEMORRHAGE [None]
